FAERS Safety Report 4469981-4 (Version None)
Quarter: 2004Q3

REPORT INFORMATION
  Report Type: 
  Country: None (occurrence: None)
  Receive Date: 20040920
  Receipt Date: 20040818
  Transmission Date: 20050211
  Serious: No
  Sender: FDA-Public Use
  Company Number: A-US2004-07163

PATIENT
  Age: 70 Year
  Sex: Female

DRUGS (7)
  1. TRACLEER [Suspect]
     Indication: PULMONARY HYPERTENSION
     Dosage: 62.5 MG, BID, ORAL
     Route: 048
     Dates: end: 20040814
  2. METFROMIN (METFORMIN) [Concomitant]
  3. DILTIAZEM [Concomitant]
  4. FUROSEMIDE [Concomitant]
  5. LISINOPRIL [Concomitant]
  6. WARFARIN (WARFARIN) [Concomitant]
  7. CRESTOR (CRESTOR) [Concomitant]

REACTIONS (1)
  - OEDEMA PERIPHERAL [None]
